FAERS Safety Report 7257355-2 (Version None)
Quarter: 2011Q1

REPORT INFORMATION
  Report Type: 
  Country: None (occurrence: None)
  Receive Date: 20110129
  Receipt Date: 20100817
  Transmission Date: 20110831
  Serious: No
  Sender: FDA-Public Use
  Company Number: US-ABBOTT-10P-163-0664763-00

PATIENT
  Age: 18 Year
  Sex: Female

DRUGS (5)
  1. PENTASA [Concomitant]
     Indication: GASTRIC DISORDER
  2. DAVOCET [Concomitant]
     Indication: PAIN
  3. NEXIUM [Concomitant]
     Indication: GASTRIC DISORDER
  4. HUMIRA [Suspect]
     Indication: CROHN'S DISEASE
     Dates: start: 20100707
  5. SYNFLEX [Concomitant]
     Indication: GASTRIC DISORDER

REACTIONS (1)
  - NAUSEA [None]
